FAERS Safety Report 5622052-3 (Version None)
Quarter: 2008Q1

REPORT INFORMATION
  Report Type: 
  Country: None (occurrence: None)
  Receive Date: 20080206
  Receipt Date: 20080116
  Transmission Date: 20080703
  Serious: Yes (Other)
  Sender: FDA-Public Use
  Company Number: GB-DEXPHARM-20080042

PATIENT
  Sex: Male

DRUGS (15)
  1. OMEPRAZOLE [Suspect]
     Dosage: 1/1 DAYS (20 MG MILLIGRAM (S))
     Route: 048
     Dates: start: 20070801, end: 20071116
  2. CLOPIDOGREL [Suspect]
     Dosage: 1/1 DAYS (75 MG ORAL MILLGRAM(S))
     Route: 048
     Dates: start: 20070801, end: 20071116
  3. FERROUS SULPHATE (IRON) [Concomitant]
  4. FLUTICASONE PROPIONATE [Concomitant]
  5. FUROSEMIDE [Concomitant]
  6. GLICLAZIDE [Concomitant]
  7. GLUCOPHAGE [Concomitant]
  8. MACROGOL [Concomitant]
  9. ALBUTEROL [Concomitant]
  10. SALMETEROL [Concomitant]
  11. SENNA [Concomitant]
  12. SILDENAFIL CITRATE [Concomitant]
  13. SOLIFENACIN [Concomitant]
  14. TRAMADOL HCL [Concomitant]
  15. VARDENAFIL [Concomitant]

REACTIONS (2)
  - ANAEMIA [None]
  - HAEMOLYSIS [None]
